FAERS Safety Report 22090663 (Version 2)
Quarter: 2023Q1

REPORT INFORMATION
  Report Type: Report from Study
  Country: CO (occurrence: CO)
  Receive Date: 20230313
  Receipt Date: 20230317
  Transmission Date: 20230418
  Serious: Yes (Death, Hospitalization)
  Sender: FDA-Public Use
  Company Number: CO-002147023-NVSC2023CO040228

PATIENT

DRUGS (3)
  1. RUXOLITINIB [Suspect]
     Active Substance: RUXOLITINIB
     Indication: Polycythaemia vera
     Dosage: 20 MG, QD
     Route: 048
     Dates: start: 2005
  2. RUXOLITINIB [Suspect]
     Active Substance: RUXOLITINIB
     Dosage: 20 MG, Q12H
     Route: 048
  3. RUXOLITINIB [Suspect]
     Active Substance: RUXOLITINIB
     Dosage: UNK
     Route: 065
     Dates: end: 202211

REACTIONS (8)
  - Blood test abnormal [Unknown]
  - Weight decreased [Unknown]
  - Death [Fatal]
  - Inappropriate schedule of product administration [Unknown]
  - Illness [Unknown]
  - Product availability issue [Unknown]
  - Malaise [Unknown]
  - General physical health deterioration [Unknown]

NARRATIVE: CASE EVENT DATE: 20050101
